FAERS Safety Report 6371630-5 (Version None)
Quarter: 2009Q3

REPORT INFORMATION
  Report Type: 
  Country: None (occurrence: None)
  Receive Date: 20090918
  Receipt Date: 20090714
  Transmission Date: 20100115
  Serious: Yes (Other)
  Sender: FDA-Public Use
  Company Number: 8049489

PATIENT
  Sex: Male

DRUGS (1)
  1. METHYLPHENIDATE HCL [Suspect]

REACTIONS (6)
  - ABNORMAL BEHAVIOUR [None]
  - EUPHORIC MOOD [None]
  - MANIA [None]
  - PENIS DISORDER [None]
  - RESTLESSNESS [None]
  - STRESS [None]
